FAERS Safety Report 9764902 (Version 1)
Quarter: 2013Q4

REPORT INFORMATION
  Report Type: Report from Study
  Country: US (occurrence: US)
  Receive Date: 20131217
  Receipt Date: 20131217
  Transmission Date: 20140711
  Serious: Yes (Hospitalization)
  Sender: FDA-Public Use
  Company Number: US-ROCHE-1310228

PATIENT
  Age: 41 Year
  Sex: Male

DRUGS (11)
  1. BEVACIZUMAB [Suspect]
     Indication: COLORECTAL CANCER METASTATIC
     Route: 065
  2. FOLINIC ACID [Suspect]
     Indication: COLORECTAL CANCER METASTATIC
     Route: 042
  3. 5-FLUOROURACIL [Suspect]
     Indication: COLORECTAL CANCER METASTATIC
     Route: 042
  4. OXALIPLATIN [Suspect]
     Indication: COLORECTAL CANCER METASTATIC
     Route: 042
  5. VITAMIN D3 [Suspect]
     Indication: COLORECTAL CANCER METASTATIC
     Dosage: 1 TABLET DAILY.
     Route: 065
  6. LIPITOR [Concomitant]
     Route: 048
  7. LISINOPRIL [Concomitant]
     Dosage: 1 TABLET
     Route: 048
  8. OMEPRAZOLE [Concomitant]
     Route: 048
  9. PROCHLORPERAZINE MALEATE [Concomitant]
     Dosage: FOR 30 DAYS.
     Route: 048
  10. ZOFRAN [Concomitant]
     Dosage: FOR 30 DAYS.
     Route: 048
  11. FLAGYL [Concomitant]
     Route: 048

REACTIONS (3)
  - Large intestinal stenosis [Recovered/Resolved]
  - Colonic fistula [Recovered/Resolved]
  - Colitis [Recovered/Resolved]
